FAERS Safety Report 8256417-0 (Version None)
Quarter: 2012Q2

REPORT INFORMATION
  Report Type: 
  Country: None (occurrence: None)
  Receive Date: 20120403
  Receipt Date: 20120328
  Transmission Date: 20120825
  Serious: Yes (Other)
  Sender: FDA-Public Use
  Company Number: US-PFIZER INC-2012079590

PATIENT

DRUGS (2)
  1. LINCOMYCIN HCL [Suspect]
     Dosage: UNK
  2. CLEOCIN HYDROCHLORIDE [Suspect]
     Dosage: UNK

REACTIONS (2)
  - RASH [None]
  - HAEMORRHAGE [None]
